FAERS Safety Report 8430935-4 (Version None)
Quarter: 2012Q2

REPORT INFORMATION
  Report Type: 
  Country: None (occurrence: None)
  Receive Date: 20120612
  Receipt Date: 20120530
  Transmission Date: 20120825
  Serious: No
  Sender: FDA-Public Use
  Company Number: US-ASTRAZENECA-2010SE56865

PATIENT
  Age: 43 Year
  Sex: Male
  Weight: 106.6 kg

DRUGS (7)
  1. TYLENOL PM [Concomitant]
  2. XANAX [Concomitant]
  3. LORTAB [Concomitant]
  4. NEXIUM [Suspect]
     Route: 048
  5. LISINOPRIL AND HYDROCHLOROTHIAZIDE [Concomitant]
  6. INSULIN [Concomitant]
  7. SEROQUEL [Suspect]
     Indication: SLEEP DISORDER
     Route: 048
     Dates: start: 20090101

REACTIONS (4)
  - ASTHENIA [None]
  - OFF LABEL USE [None]
  - DRUG DOSE OMISSION [None]
  - INSOMNIA [None]
